FAERS Safety Report 25749658 (Version 2)
Quarter: 2025Q3

REPORT INFORMATION
  Report Type: Report from Study
  Country: US (occurrence: US)
  Receive Date: 20250902
  Receipt Date: 20250911
  Transmission Date: 20251021
  Serious: No
  Sender: SUNOVION
  Company Number: US-SUMITOMO PHARMA SWITZERLAND GMBH-2025SPA010926

PATIENT
  Age: 73 Year
  Sex: Male

DRUGS (37)
  1. ORGOVYX [Suspect]
     Active Substance: RELUGOLIX
     Indication: Prostate cancer
     Route: 048
     Dates: start: 20250815, end: 20250815
  2. ORGOVYX [Suspect]
     Active Substance: RELUGOLIX
     Route: 048
  3. ABIRATERONE ACETATE [Suspect]
     Active Substance: ABIRATERONE ACETATE
  4. ALPHA LIPOIC ACID [Concomitant]
     Active Substance: .ALPHA.-LIPOIC ACID
  5. AMLODIPINE BESYLATE [Concomitant]
     Active Substance: AMLODIPINE BESYLATE
  6. ASCORBIC ACID [Concomitant]
     Active Substance: ASCORBIC ACID
  7. ASTAXANTHIN [Concomitant]
     Active Substance: ASTAXANTHIN
  8. Beet root [Concomitant]
  9. COENZYME Q10 [Concomitant]
     Active Substance: DIETARY SUPPLEMENT\UBIDECARENONE
  10. 3,3^-DIINDOLYLMETHANE [Concomitant]
     Active Substance: 3,3^-DIINDOLYLMETHANE
  11. EPIGALLOCATECHIN GALLATE [Concomitant]
     Active Substance: EPIGALLOCATECHIN GALLATE
  12. FISH OIL [Concomitant]
     Active Substance: FISH OIL
  13. CHONDROITIN SULFATE (BOVINE)\GLUCOSAMINE HYDROCHLORIDE [Concomitant]
     Active Substance: CHONDROITIN SULFATE (BOVINE)\GLUCOSAMINE HYDROCHLORIDE
  14. PROBIOTICS NOS [Concomitant]
     Active Substance: PROBIOTICS NOS
  15. LEVOMEFOLIC ACID [Concomitant]
     Active Substance: LEVOMEFOLIC ACID
  16. TRYPTOPHAN [Concomitant]
     Active Substance: TRYPTOPHAN
  17. LEVOTHYROXINE SODIUM [Concomitant]
     Active Substance: LEVOTHYROXINE SODIUM
  18. LISINOPRIL [Concomitant]
     Active Substance: LISINOPRIL
  19. LUTEIN [Concomitant]
     Active Substance: LUTEIN
  20. LYCOPENE [Concomitant]
     Active Substance: LYCOPENE
  21. MAGNESIUM GLYCINATE [Concomitant]
     Active Substance: MAGNESIUM GLYCINATE
  22. MELATONIN [Concomitant]
     Active Substance: MELATONIN
  23. DIETARY SUPPLEMENT\HERBALS\MILK THISTLE [Concomitant]
     Active Substance: MILK THISTLE
  24. N-acetyl cysteine biocare [Concomitant]
  25. PHOSPHATIDYL SERINE [Concomitant]
     Active Substance: PHOSPHATIDYL SERINE
  26. PREDNISONE [Concomitant]
     Active Substance: PREDNISONE
  27. Turmeric complex [Concomitant]
  28. QUERCETIN [Concomitant]
     Active Substance: QUERCETIN
  29. ACETAMINOPHEN\DIHYDROCODEINE [Concomitant]
     Active Substance: ACETAMINOPHEN\DIHYDROCODEINE
  30. DIETARY SUPPLEMENT\RESVERATROL [Concomitant]
     Active Substance: DIETARY SUPPLEMENT\RESVERATROL
  31. RUTIN [Concomitant]
     Active Substance: RUTIN
  32. TADALAFIL [Concomitant]
     Active Substance: TADALAFIL
  33. TAMSULOSIN [Concomitant]
     Active Substance: TAMSULOSIN
  34. VITAMIN B12 [Concomitant]
     Active Substance: CYANOCOBALAMIN
  35. ZINC GLUCONATE [Concomitant]
     Active Substance: ZINC GLUCONATE
  36. VITAMIN D3 [Concomitant]
     Active Substance: CHOLECALCIFEROL
  37. VITAMIN D2 [Concomitant]
     Active Substance: ERGOCALCIFEROL

REACTIONS (3)
  - Abdominal discomfort [Unknown]
  - Fatigue [Unknown]
  - Hot flush [Unknown]
